FAERS Safety Report 19567040 (Version 13)
Quarter: 2025Q2

REPORT INFORMATION
  Report Type: Report from Study
  Country: US (occurrence: US)
  Receive Date: 20210714
  Receipt Date: 20250507
  Transmission Date: 20250717
  Serious: Yes (Other)
  Sender: TAKEDA
  Company Number: US-TAKEDA-2021TUS042933

PATIENT
  Sex: Male
  Weight: 84 kg

DRUGS (17)
  1. RURIOCTOCOG ALFA PEGOL [Suspect]
     Active Substance: RURIOCTOCOG ALFA PEGOL
     Indication: Haemorrhage
     Dosage: 45 INTERNATIONAL UNIT/KILOGRAM, 2/WEEK
  2. RURIOCTOCOG ALFA PEGOL [Suspect]
     Active Substance: RURIOCTOCOG ALFA PEGOL
     Dosage: 45 INTERNATIONAL UNIT/KILOGRAM, 2/WEEK
  3. RURIOCTOCOG ALFA PEGOL [Suspect]
     Active Substance: RURIOCTOCOG ALFA PEGOL
     Dosage: 45 INTERNATIONAL UNIT/KILOGRAM, 2/WEEK
  4. RURIOCTOCOG ALFA PEGOL [Suspect]
     Active Substance: RURIOCTOCOG ALFA PEGOL
     Dosage: 45 INTERNATIONAL UNIT/KILOGRAM, 2/WEEK
  5. RURIOCTOCOG ALFA PEGOL [Suspect]
     Active Substance: RURIOCTOCOG ALFA PEGOL
     Dosage: 45 INTERNATIONAL UNIT/KILOGRAM, 2/WEEK
  6. RURIOCTOCOG ALFA PEGOL [Suspect]
     Active Substance: RURIOCTOCOG ALFA PEGOL
     Dosage: 45 INTERNATIONAL UNIT/KILOGRAM, 2/WEEK
  7. RURIOCTOCOG ALFA PEGOL [Suspect]
     Active Substance: RURIOCTOCOG ALFA PEGOL
     Dosage: 45 INTERNATIONAL UNIT/KILOGRAM, 2/WEEK
  8. RURIOCTOCOG ALFA PEGOL [Suspect]
     Active Substance: RURIOCTOCOG ALFA PEGOL
     Dosage: 3690 INTERNATIONAL UNIT, Q2WEEKS
  9. RURIOCTOCOG ALFA PEGOL [Suspect]
     Active Substance: RURIOCTOCOG ALFA PEGOL
     Dosage: 3690 INTERNATIONAL UNIT, 2/WEEK
  10. RURIOCTOCOG ALFA PEGOL [Suspect]
     Active Substance: RURIOCTOCOG ALFA PEGOL
     Dosage: 3690 INTERNATIONAL UNIT, 2/WEEK
  11. RURIOCTOCOG ALFA PEGOL [Suspect]
     Active Substance: RURIOCTOCOG ALFA PEGOL
     Dosage: 3690 INTERNATIONAL UNIT, 2/WEEK
  12. RURIOCTOCOG ALFA PEGOL [Suspect]
     Active Substance: RURIOCTOCOG ALFA PEGOL
     Dosage: 3690 INTERNATIONAL UNIT, 2/WEEK
  13. RURIOCTOCOG ALFA PEGOL [Suspect]
     Active Substance: RURIOCTOCOG ALFA PEGOL
     Dosage: 3690 INTERNATIONAL UNIT, 2/WEEK
  14. RURIOCTOCOG ALFA PEGOL [Suspect]
     Active Substance: RURIOCTOCOG ALFA PEGOL
     Dosage: UNK UNK, Q2WEEKS
  15. RURIOCTOCOG ALFA PEGOL [Suspect]
     Active Substance: RURIOCTOCOG ALFA PEGOL
  16. RURIOCTOCOG ALFA PEGOL [Suspect]
     Active Substance: RURIOCTOCOG ALFA PEGOL
  17. VPRIV [Suspect]
     Active Substance: VELAGLUCERASE ALFA
     Indication: Haemorrhage
     Dosage: 3700 INTERNATIONAL UNIT, 2/WEEK

REACTIONS (8)
  - Pneumothorax [Unknown]
  - Pulmonary haemorrhage [Not Recovered/Not Resolved]
  - Post procedural haemorrhage [Unknown]
  - Contusion [Unknown]
  - Haemarthrosis [Recovered/Resolved]
  - Product dose omission issue [Unknown]
  - Product use issue [Unknown]
  - Product availability issue [Unknown]
